FAERS Safety Report 9061749 (Version 2)
Quarter: 2013Q2

REPORT INFORMATION
  Report Type: Spontaneous
  Country: JP (occurrence: JP)
  Receive Date: 20130204
  Receipt Date: 20130524
  Transmission Date: 20140414
  Serious: Yes (Other)
  Sender: FDA-Public Use
  Company Number: PHHY2012JP083123

PATIENT
  Age: 42 Year
  Sex: Male
  Weight: 42 kg

DRUGS (3)
  1. NEORAL [Suspect]
     Indication: APLASTIC ANAEMIA
     Dosage: 50 MG, QD
     Route: 048
     Dates: start: 20070314, end: 20120914
  2. NEORAL [Suspect]
     Indication: HAEMOLYSIS
     Dosage: 10 MG, QD
     Route: 048
     Dates: start: 20120919
  3. VALIXA [Suspect]
     Dosage: 450 MG, BID
     Route: 048
     Dates: start: 20120913

REACTIONS (3)
  - Haemolysis [Unknown]
  - Renal disorder [Recovering/Resolving]
  - Renal impairment [Recovering/Resolving]
